FAERS Safety Report 14668843 (Version 1)
Quarter: 2018Q1

REPORT INFORMATION
  Report Type: Spontaneous
  Country: US (occurrence: US)
  Receive Date: 20180322
  Receipt Date: 20180322
  Transmission Date: 20180509
  Serious: No
  Sender: FDA-Public Use
  Company Number: US-BRACCO DIAGNOSTICS, INC.-2017US04242

PATIENT

DRUGS (1)
  1. GASTROGRAFIN [Suspect]
     Active Substance: DIATRIZOATE MEGLUMINE\DIATRIZOATE SODIUM
     Dosage: UNK
     Route: 048

REACTIONS (2)
  - Multiple use of single-use product [Unknown]
  - No adverse event [Unknown]
